FAERS Safety Report 6473144-0 (Version None)
Quarter: 2009Q4

REPORT INFORMATION
  Report Type: 
  Country: None (occurrence: None)
  Receive Date: 20091204
  Receipt Date: 20080718
  Transmission Date: 20100525
  Serious: Yes (Death)
  Sender: FDA-Public Use
  Company Number: JP-ELI_LILLY_AND_COMPANY-JP200806002634

PATIENT
  Sex: Female

DRUGS (9)
  1. RALOXIFENE HYDROCHLORIDE [Suspect]
     Indication: OSTEOPOROSIS POSTMENOPAUSAL
     Dosage: 60 MG, DAILY (1/D)
     Route: 048
     Dates: start: 20050328
  2. INSIDE [Concomitant]
     Indication: BACK PAIN
     Dosage: 2 D/F, DAILY (1/D)
     Route: 062
     Dates: start: 20001012
  3. CALCITONIN-SALMON [Concomitant]
     Indication: OSTEOPOROSIS POSTMENOPAUSAL
     Dosage: 10 IU, 2/W
     Route: 030
     Dates: start: 20010511
  4. D ALFA [Concomitant]
     Indication: OSTEOPOROSIS POSTMENOPAUSAL
     Dosage: 0.5 UG, DAILY (1/D)
     Route: 048
     Dates: start: 20010614
  5. ALDIOXA [Concomitant]
     Indication: GASTRITIS
     Dosage: 100 MG, DAILY (1/D)
     Route: 048
     Dates: start: 20050311
  6. LOXONIN [Concomitant]
     Indication: BACK PAIN
     Dosage: 60 MG, DAILY (1/D)
     Route: 048
     Dates: start: 20051025
  7. MAGNESIUM OXIDE [Concomitant]
     Indication: CONSTIPATION
     Dosage: 2 G, DAILY (1/D)
     Route: 048
     Dates: start: 20070911
  8. MIYA-BM [Concomitant]
     Indication: CONSTIPATION
     Dosage: 3 G, DAILY (1/D)
     Route: 048
     Dates: start: 20070911
  9. BLOPRESS [Concomitant]
     Indication: HYPERTENSION
     Dosage: 8 MG, DAILY (1/D)
     Route: 048
     Dates: start: 20071217

REACTIONS (1)
  - LARGE INTESTINE CARCINOMA [None]
